FAERS Safety Report 8687606 (Version 5)
Quarter: 2013Q4

REPORT INFORMATION
  Report Type: Spontaneous
  Country: US (occurrence: US)
  Receive Date: 20120727
  Receipt Date: 20131231
  Transmission Date: 20140711
  Serious: Yes (Hospitalization, Other)
  Sender: FDA-Public Use
  Company Number: US-009507513-1207USA008748

PATIENT
  Sex: Female
  Weight: 68.27 kg

DRUGS (3)
  1. NUVARING [Suspect]
     Indication: CONTRACEPTION
     Dosage: UNK
     Dates: start: 201002, end: 20100529
  2. IBUPROFEN [Concomitant]
     Indication: PAIN
  3. IBUPROFEN [Concomitant]
     Indication: INFLAMMATION

REACTIONS (3)
  - Pulmonary embolism [Unknown]
  - Deep vein thrombosis [Unknown]
  - Arthralgia [Unknown]
